FAERS Safety Report 25101795 (Version 1)
Quarter: 2025Q1

REPORT INFORMATION
  Report Type: Spontaneous
  Country: US (occurrence: US)
  Receive Date: 20250320
  Receipt Date: 20250320
  Transmission Date: 20250408
  Serious: No
  Sender: ELI LILLY AND COMPANY
  Company Number: US-ELI_LILLY_AND_COMPANY-US202503013656

PATIENT
  Age: 82 Year
  Sex: Female

DRUGS (1)
  1. HUMALOG MIX75/25 [Suspect]
     Active Substance: INSULIN LISPRO
     Indication: Product used for unknown indication
     Dosage: 38 U, DAILY (22+16UNITS)
     Route: 058

REACTIONS (2)
  - Blood glucose increased [Recovering/Resolving]
  - Expired product administered [Recovering/Resolving]
